FAERS Safety Report 21486374 (Version 2)
Quarter: 2022Q4

REPORT INFORMATION
  Report Type: Spontaneous
  Country: GR (occurrence: GR)
  Receive Date: 20221020
  Receipt Date: 20221101
  Transmission Date: 20230113
  Serious: Yes (Death, Hospitalization, Other)
  Sender: FDA-Public Use
  Company Number: GR-PFIZER INC-PV202200084941

PATIENT
  Age: 75 Year
  Sex: Male

DRUGS (12)
  1. PAXLOVID [Interacting]
     Active Substance: NIRMATRELVIR\RITONAVIR
     Indication: COVID-19 treatment
     Dosage: MORNING, EVENING
     Dates: start: 20221014
  2. ENTRESTO [Interacting]
     Active Substance: SACUBITRIL\VALSARTAN
  3. METOLAZONE [Concomitant]
     Active Substance: METOLAZONE
  4. LEVOTHYROXINE [Concomitant]
     Active Substance: LEVOTHYROXINE
  5. ALLOPURINOL [Concomitant]
     Active Substance: ALLOPURINOL
  6. ATORVASTATIN [Concomitant]
     Active Substance: ATORVASTATIN
  7. DAPAGLIFLOZIN [Concomitant]
     Active Substance: DAPAGLIFLOZIN
  8. FUROSEMIDE [Concomitant]
     Active Substance: FUROSEMIDE
  9. ISOSORBIDE MONONITRATE [Concomitant]
     Active Substance: ISOSORBIDE MONONITRATE
  10. RIVAROXABAN [Concomitant]
     Active Substance: RIVAROXABAN
  11. OMEPRAZOLE [Concomitant]
     Active Substance: OMEPRAZOLE
  12. BETAINE [Concomitant]
     Active Substance: BETAINE

REACTIONS (17)
  - Death [Fatal]
  - Drug ineffective [Fatal]
  - COVID-19 [Fatal]
  - Drug interaction [Fatal]
  - Shock [Fatal]
  - Respiratory distress [Unknown]
  - Unresponsive to stimuli [Unknown]
  - Electrocardiogram T wave inversion [Unknown]
  - Electrocardiogram ST segment elevation [Unknown]
  - Pulse absent [Recovered/Resolved]
  - Haemodynamic instability [Not Recovered/Not Resolved]
  - Myoclonus [Unknown]
  - Metabolic acidosis [Not Recovered/Not Resolved]
  - Anuria [Not Recovered/Not Resolved]
  - Renal failure [Unknown]
  - Myocardial infarction [Unknown]
  - Coronary artery disease [Unknown]

NARRATIVE: CASE EVENT DATE: 20221017
